FAERS Safety Report 8439241-5 (Version None)
Quarter: 2012Q2

REPORT INFORMATION
  Report Type: 
  Country: None (occurrence: None)
  Receive Date: 20120615
  Receipt Date: 20120611
  Transmission Date: 20120825
  Serious: Yes (Other)
  Sender: FDA-Public Use
  Company Number: PHHY2011CA17835

PATIENT
  Sex: Female

DRUGS (2)
  1. SANDOSTATIN LAR [Suspect]
     Dosage: 30 MG, BIW
     Route: 030
     Dates: start: 20120410
  2. SANDOSTATIN LAR [Suspect]
     Indication: SMALL INTESTINE CARCINOMA
     Dosage: 30 MG, EVERY 4 WEEKS
     Route: 030
     Dates: start: 20080128, end: 20120328

REACTIONS (4)
  - LIVER OPERATION [None]
  - PAIN [None]
  - UPPER LIMB FRACTURE [None]
  - CONSTIPATION [None]
